FAERS Safety Report 9018135 (Version 1)
Quarter: 2013Q1

REPORT INFORMATION
  Report Type: Spontaneous
  Country: US (occurrence: US)
  Receive Date: 20130117
  Receipt Date: 20130117
  Transmission Date: 20140127
  Serious: No
  Sender: FDA-Public Use
  Company Number: US-TEVA-376241USA

PATIENT
  Age: 21 None
  Sex: Female
  Weight: 65.38 kg

DRUGS (1)
  1. PARAGARD 380A [Suspect]
     Indication: CONTRACEPTION
     Route: 015
     Dates: start: 20121026, end: 20121210

REACTIONS (2)
  - Contraception [Recovered/Resolved]
  - Urinary tract infection [Not Recovered/Not Resolved]
